FAERS Safety Report 5357333-4 (Version None)
Quarter: 2007Q2

REPORT INFORMATION
  Report Type: 
  Country: None (occurrence: None)
  Receive Date: 20070614
  Receipt Date: 20070611
  Transmission Date: 20071010
  Serious: Yes (Hospitalization)
  Sender: FDA-Public Use
  Company Number: A0647651A

PATIENT
  Age: 62 Year
  Sex: Female
  Weight: 78.2 kg

DRUGS (2)
  1. LOTRONEX [Suspect]
     Indication: IRRITABLE BOWEL SYNDROME
     Route: 048
     Dates: start: 20000101, end: 20070301
  2. ESTRATEST [Concomitant]

REACTIONS (5)
  - ABDOMINAL PAIN [None]
  - COLITIS ISCHAEMIC [None]
  - GASTROINTESTINAL DISORDER [None]
  - ISCHAEMIA [None]
  - RECTAL HAEMORRHAGE [None]
